FAERS Safety Report 8143790-7 (Version None)
Quarter: 2012Q1

REPORT INFORMATION
  Report Type: 
  Country: None (occurrence: None)
  Receive Date: 20120214
  Receipt Date: 20120130
  Transmission Date: 20120608
  Serious: Yes (Hospitalization)
  Sender: FDA-Public Use
  Company Number: 2012P1002655

PATIENT
  Age: 86 Year
  Sex: Female
  Weight: 55.7924 kg

DRUGS (28)
  1. COLACE [Concomitant]
  2. MULTI-VITAMINS [Concomitant]
  3. ATELVIA [Concomitant]
  4. COZAAR [Concomitant]
  5. PRAVASTATIN [Concomitant]
  6. VITAMIN B6 [Concomitant]
  7. OMEPRAZOLE [Concomitant]
  8. TRAMADOL HCL [Concomitant]
  9. METOLAZONE [Concomitant]
  10. LASIX [Concomitant]
  11. CEREFOLIN [Concomitant]
  12. SYNTHROID [Concomitant]
  13. ISOSORBIDE MONONITRATE [Concomitant]
  14. SUPER B COMPLEX [Concomitant]
  15. CO-Q10 [Concomitant]
  16. OXYBUTYNIN CHLORIDE [Concomitant]
  17. POTASSIUM CHLORIDE [Suspect]
     Indication: BLOOD POTASSIUM DECREASED
     Dosage: 1 PACKET;QD, 4 DAYS/WEEK;  2 PACKETS;QD 3 DAYS/WEEK
     Dates: start: 20120112
  18. FISH OIL [Concomitant]
  19. GLUCOSAMINE CHONDROITIN [Concomitant]
  20. DIGESTIVE ENZYME CAPSULE [Concomitant]
  21. ASPIRIN [Concomitant]
  22. CALCITRIOL [Concomitant]
  23. ALPRAZOLAM [Concomitant]
  24. CARVEDILOL [Concomitant]
  25. NITROGLYCERIN [Concomitant]
  26. VITAMIN B COMPLEX (FOLIC ACID) [Concomitant]
  27. MAGNESIUM OXIDE [Concomitant]
  28. ONGLYZA [Concomitant]

REACTIONS (3)
  - DIARRHOEA [None]
  - BLOOD POTASSIUM ABNORMAL [None]
  - PRODUCT SUBSTITUTION ISSUE [None]
